FAERS Safety Report 7362214-0 (Version None)
Quarter: 2011Q1

REPORT INFORMATION
  Report Type: 
  Country: None (occurrence: None)
  Receive Date: 20110309
  Receipt Date: 20110222
  Transmission Date: 20110831
  Serious: Yes (Life-Threatening)
  Sender: FDA-Public Use
  Company Number: USEN-8E7QHD

PATIENT
  Sex: Male

DRUGS (1)
  1. DURAPREP [Suspect]
     Indication: PREOPERATIVE CARE
     Dosage: 26 ML, TOPICAL, SINGLE APPLICATION
     Route: 061

REACTIONS (1)
  - THERMAL BURN [None]
